FAERS Safety Report 5605196-1 (Version None)
Quarter: 2008Q1

REPORT INFORMATION
  Report Type: 
  Country: None (occurrence: None)
  Receive Date: 20080124
  Receipt Date: 20080116
  Transmission Date: 20080703
  Serious: Yes (Hospitalization, Other)
  Sender: FDA-Public Use
  Company Number: 2008SP001414

PATIENT
  Age: 45 Year
  Sex: Female

DRUGS (4)
  1. PEG-INTRON [Suspect]
     Indication: HEPATITIS C
     Dosage: SC, SC
     Route: 058
     Dates: start: 20071201, end: 20071221
  2. PEG-INTRON [Suspect]
     Indication: HEPATITIS C
     Dosage: SC, SC
     Route: 058
     Dates: start: 20080109
  3. RIBAVIRIN [Suspect]
     Indication: HEPATITIS C
     Dates: start: 20071201, end: 20071221
  4. RIBAVIRIN [Suspect]
     Indication: HEPATITIS C
     Dates: start: 20080109

REACTIONS (5)
  - ANAEMIA [None]
  - DEHYDRATION [None]
  - HEADACHE [None]
  - LIMB INJURY [None]
  - STAPHYLOCOCCAL SEPSIS [None]
